FAERS Safety Report 10977159 (Version 4)
Quarter: 2015Q2

REPORT INFORMATION
  Report Type: Report from Study
  Country: TR (occurrence: TR)
  Receive Date: 20150402
  Receipt Date: 20150507
  Transmission Date: 20150821
  Serious: Yes (Hospitalization, Other)
  Sender: FDA-Public Use
  Company Number: TR-ABBVIE-15K-161-1367665-00

PATIENT
  Age: 36 Year
  Sex: Male
  Weight: 82 kg

DRUGS (1)
  1. HUMIRA [Suspect]
     Active Substance: ADALIMUMAB
     Indication: CROHN^S DISEASE
     Route: 058
     Dates: start: 20140410, end: 20140818

REACTIONS (5)
  - Renal cyst [Recovered/Resolved]
  - Renal pain [Recovered/Resolved]
  - Tuberculosis [Recovered/Resolved]
  - Back pain [Recovered/Resolved]
  - Renal abscess [Recovered/Resolved]

NARRATIVE: CASE EVENT DATE: 20141014
